FAERS Safety Report 4712715-6 (Version None)
Quarter: 2005Q3

REPORT INFORMATION
  Report Type: 
  Country: None (occurrence: None)
  Receive Date: 20050706
  Receipt Date: 20041221
  Transmission Date: 20060218
  Serious: Yes (Other)
  Sender: FDA-Public Use
  Company Number: K200401963

PATIENT

DRUGS (1)
  1. BICILLIN L-A [Suspect]
     Dosage: INTRAMUSCULAR
     Route: 030

REACTIONS (1)
  - ANAPHYLACTIC REACTION [None]
